FAERS Safety Report 16790226 (Version 2)
Quarter: 2020Q2

REPORT INFORMATION
  Report Type: Report from Study
  Country: MX (occurrence: MX)
  Receive Date: 20190910
  Receipt Date: 20200519
  Transmission Date: 20200713
  Serious: Yes (Life-Threatening, Other)
  Sender: FDA-Public Use
  Company Number: PHHY2019MX195988

PATIENT
  Age: 71 Year
  Sex: Female
  Weight: 61 kg

DRUGS (2)
  1. GALVUS MET [Suspect]
     Active Substance: METFORMIN HYDROCHLORIDE\VILDAGLIPTIN
     Indication: DIABETES MELLITUS
     Dosage: 1 DF (METFORMIN 500 MG, VILDAGLIPTIN 50 MG), BID
     Route: 048
     Dates: start: 2010
  2. GALVUS MET [Suspect]
     Active Substance: METFORMIN HYDROCHLORIDE\VILDAGLIPTIN
     Dosage: 1 DF (METFORMIN 500 MG, VILDAGLIPTIN 50 MG), BID
     Route: 048
     Dates: start: 2010

REACTIONS (13)
  - Insomnia [Recovered/Resolved]
  - Infection [Recovering/Resolving]
  - Wheezing [Recovered/Resolved]
  - Visual impairment [Unknown]
  - Feeling abnormal [Recovering/Resolving]
  - Wheezing [Recovering/Resolving]
  - Bronchitis [Recovering/Resolving]
  - Cough [Recovering/Resolving]
  - Interstitial lung disease [Recovering/Resolving]
  - Pulmonary fibrosis [Recovering/Resolving]
  - Asthma [Recovered/Resolved]
  - Speech sound disorder [Recovering/Resolving]
  - Pneumonitis [Recovering/Resolving]

NARRATIVE: CASE EVENT DATE: 201812
